FAERS Safety Report 14473945 (Version 2)
Quarter: 2018Q1

REPORT INFORMATION
  Report Type: Report from Study
  Country: DE (occurrence: DE)
  Receive Date: 20180201
  Receipt Date: 20180211
  Transmission Date: 20180509
  Serious: Yes (Hospitalization)
  Sender: FDA-Public Use
  Company Number: PHHY2017DE175123

PATIENT
  Age: 70 Year
  Sex: Male
  Weight: 115 kg

DRUGS (1)
  1. ENTRESTO [Suspect]
     Active Substance: SACUBITRIL\VALSARTAN
     Indication: CARDIAC FAILURE
     Dosage: 1 DF (SACUBITRIL 24MG/ VALSARTAN 26MG) BID
     Route: 048
     Dates: start: 20160905

REACTIONS (5)
  - Ventricular fibrillation [Recovering/Resolving]
  - Ventricular tachycardia [Not Recovered/Not Resolved]
  - Balanoposthitis [Recovering/Resolving]
  - Leukocyturia [Unknown]
  - Urinary tract infection [Recovering/Resolving]

NARRATIVE: CASE EVENT DATE: 20170926
